FAERS Safety Report 6664285-3 (Version None)
Quarter: 2010Q2

REPORT INFORMATION
  Report Type: 
  Country: None (occurrence: None)
  Receive Date: 20100401
  Receipt Date: 20100323
  Transmission Date: 20101027
  Serious: Yes (Life-Threatening, Hospitalization)
  Sender: FDA-Public Use
  Company Number: GB-ELI_LILLY_AND_COMPANY-GB201003006038

PATIENT
  Age: 34 Year
  Sex: Female
  Weight: 55 kg

DRUGS (2)
  1. CYMBALTA [Suspect]
     Dosage: 30 MG, UNKNOWN
     Route: 048
     Dates: start: 20070101, end: 20100212
  2. TOPIRAMATE [Concomitant]
     Dosage: 25 MG, 3/D
     Route: 048
     Dates: start: 20070101, end: 20100226

REACTIONS (7)
  - AGITATION [None]
  - NERVOUS SYSTEM DISORDER [None]
  - OVERDOSE [None]
  - SUICIDE ATTEMPT [None]
  - TINNITUS [None]
  - VISUAL IMPAIRMENT [None]
  - WITHDRAWAL SYNDROME [None]
